FAERS Safety Report 7958236-9 (Version None)
Quarter: 2011Q4

REPORT INFORMATION
  Report Type: 
  Country: None (occurrence: None)
  Receive Date: 20111205
  Receipt Date: 20111121
  Transmission Date: 20120403
  Serious: Yes (Other)
  Sender: FDA-Public Use
  Company Number: US-ROCHE-1015563

PATIENT
  Sex: Female

DRUGS (3)
  1. BONIVA [Suspect]
     Indication: OSTEOPOROSIS
  2. FOSAMAX [Suspect]
     Indication: OSTEOPOROSIS
  3. ACTONEL [Suspect]
     Indication: OSTEOPOROSIS

REACTIONS (2)
  - OSTEONECROSIS OF JAW [None]
  - ANXIETY [None]
